FAERS Safety Report 12294706 (Version 2)
Quarter: 2016Q2

REPORT INFORMATION
  Report Type: Spontaneous
  Country: FI (occurrence: FI)
  Receive Date: 20160422
  Receipt Date: 20160602
  Transmission Date: 20160815
  Serious: Yes (Hospitalization, Other)
  Sender: FDA-Public Use
  Company Number: PHHY2016FI050841

PATIENT
  Sex: Female

DRUGS (20)
  1. LERCANIDIPIN HYDROCHLORID ACTAVIS [Concomitant]
     Indication: HYPERTENSION
     Dosage: 10 MG, BID
     Route: 065
  2. PAROXETIN ORION [Concomitant]
     Indication: ANTIDEPRESSANT THERAPY
     Dosage: 10 MG, QD
     Route: 065
  3. OPAMOX [Concomitant]
     Indication: SEDATIVE THERAPY
     Dosage: 7.5 MG, TID
     Route: 065
  4. OPAMOX [Concomitant]
     Dosage: 7.5 MG, BID
     Route: 065
  5. LAEVOLAC [Concomitant]
     Active Substance: LACTULOSE
     Dosage: 20 ML, QD
     Route: 065
  6. FURESIS [Concomitant]
     Active Substance: FUROSEMIDE
     Indication: DIURETIC THERAPY
     Dosage: 20 MG, QD
     Route: 065
  7. PARA-TABS [Concomitant]
     Active Substance: ACETAMINOPHEN
     Indication: PRODUCT USED FOR UNKNOWN INDICATION
     Dosage: 1 G, (1-3 TIMES PER DAY WHEN NEEDED)
     Route: 065
  8. DINIT [Concomitant]
     Active Substance: ISOSORBIDE DINITRATE
     Indication: PRODUCT USED FOR UNKNOWN INDICATION
     Dosage: UNK UNK, PRN
     Route: 065
  9. PRAVASTATIN ORION [Concomitant]
     Indication: PRODUCT USED FOR UNKNOWN INDICATION
     Dosage: 20 MG, QD
     Route: 065
  10. DIOVAN [Suspect]
     Active Substance: VALSARTAN
     Dosage: 1 DF, QD  (160 MG)
     Route: 065
  11. ZOPINOX [Concomitant]
     Active Substance: ZOPICLONE
     Indication: SOMNOLENCE
     Dosage: 7.5 MG, QD
     Route: 065
  12. METOPROLOL TARTRATE. [Concomitant]
     Active Substance: METOPROLOL TARTRATE
     Indication: CARDIAC DISORDER
     Dosage: 47.5 MG, QD
     Route: 065
  13. CREON [Concomitant]
     Active Substance: PANCRELIPASE AMYLASE\PANCRELIPASE LIPASE\PANCRELIPASE PROTEASE
     Indication: PRODUCT USED FOR UNKNOWN INDICATION
     Dosage: 150 MG, TID
     Route: 065
  14. COHEMIN DEPOT [Concomitant]
     Indication: PRODUCT USED FOR UNKNOWN INDICATION
     Dosage: 1 AMPOULE EVERY 3 MONTHS
     Route: 065
  15. VAGIFEM [Concomitant]
     Active Substance: ESTRADIOL
     Indication: PRODUCT USED FOR UNKNOWN INDICATION
     Dosage: ACCORDING TO SEPARATE INSTRUCTIONS
     Route: 065
  16. DIOVAN [Suspect]
     Active Substance: VALSARTAN
     Indication: HYPERTENSION
     Dosage: 1.5 DF, QD (240 MG)
     Route: 065
     Dates: start: 20141020
  17. LERCANIDIPIN HYDROCHLORID ACTAVIS [Concomitant]
     Dosage: 10 MG, QD IN THE MORNING
     Route: 065
  18. LAEVOLAC [Concomitant]
     Active Substance: LACTULOSE
     Indication: LAXATIVE SUPPORTIVE CARE
     Dosage: 20-30 ML TWICE PER DAY
     Route: 065
  19. PANZOR [Concomitant]
     Indication: PRODUCT USED FOR UNKNOWN INDICATION
     Dosage: 40 MG, QD
     Route: 065
  20. CALCICHEW-D3 FORTE [Concomitant]
     Active Substance: CALCIUM\CHOLECALCIFEROL
     Indication: PRODUCT USED FOR UNKNOWN INDICATION
     Dosage: 1 DF, BID (50MG/100UG)
     Route: 065

REACTIONS (22)
  - Vision blurred [Unknown]
  - Hypotension [Unknown]
  - Fatigue [Unknown]
  - Haemoglobin decreased [Unknown]
  - Anxiety [Unknown]
  - Abdominal pain [Unknown]
  - Insomnia [Unknown]
  - Cardiac failure [Unknown]
  - Off label use [Unknown]
  - Urinary tract infection [Unknown]
  - Atrial fibrillation [Unknown]
  - Post herpetic neuralgia [Unknown]
  - Feeling abnormal [Unknown]
  - Dizziness postural [Unknown]
  - Underweight [Unknown]
  - Renal failure [Unknown]
  - Depressed mood [Unknown]
  - Malaise [Unknown]
  - Dizziness [Unknown]
  - Decreased appetite [Unknown]
  - Weight decreased [Unknown]
  - Hyponatraemia [Unknown]

NARRATIVE: CASE EVENT DATE: 20150703
